FAERS Safety Report 7649520-7 (Version None)
Quarter: 2011Q3

REPORT INFORMATION
  Report Type: 
  Country: None (occurrence: None)
  Receive Date: 20110727
  Receipt Date: 20110711
  Transmission Date: 20111222
  Serious: Yes (Other)
  Sender: FDA-Public Use
  Company Number: 2011MA008651

PATIENT
  Age: 61 Year
  Sex: Female

DRUGS (12)
  1. BARBITURATE [Suspect]
     Indication: SEDATION
  2. BARBITURATE [Suspect]
     Indication: PAIN
  3. HYDROXYZINE HCL [Suspect]
     Indication: ANTIALLERGIC THERAPY
  4. EPINEPHRINE [Suspect]
     Indication: ANAESTHESIA
     Dosage: 0.1 MG
  5. OPIOID [Suspect]
     Indication: PAIN
  6. OPIOID [Suspect]
     Indication: SEDATION
  7. LIDOCAINE 1% [Suspect]
     Indication: ANAESTHESIA
     Dosage: 10 ML
  8. DIAZEPAM [Suspect]
     Indication: PAIN
     Dosage: IV
     Route: 042
  9. DIAZEPAM [Suspect]
     Indication: SEDATION
     Dosage: IV
     Route: 042
  10. NEUROLEPTIC [Suspect]
     Indication: PAIN
  11. NEUROLEPTIC [Suspect]
     Indication: SEDATION
  12. PROPRANOLOL HCL [Suspect]
     Indication: HYPERTENSION
     Dosage: 40 MG; BID

REACTIONS (3)
  - BRADYCARDIA [None]
  - DRUG INTERACTION [None]
  - HYPERTENSION [None]
